FAERS Safety Report 7691465-0 (Version None)
Quarter: 2011Q3

REPORT INFORMATION
  Report Type: 
  Country: None (occurrence: None)
  Receive Date: 20110818
  Receipt Date: 20110816
  Transmission Date: 20111222
  Serious: Yes (Death, Hospitalization)
  Sender: FDA-Public Use
  Company Number: PHHY2011US54110

PATIENT
  Sex: Male
  Weight: 98.866 kg

DRUGS (6)
  1. MORPHINE [Concomitant]
  2. AFINITOR [Suspect]
     Dosage: 10 MG, DAILY
     Route: 048
     Dates: start: 20110526
  3. LIPITOR [Concomitant]
  4. AFINITOR [Suspect]
     Indication: RENAL CELL CARCINOMA
     Dosage: 10 MG, DAILY
     Route: 048
     Dates: start: 20110308, end: 20110502
  5. PRISTIQ [Concomitant]
  6. FEMEX [Concomitant]

REACTIONS (7)
  - RADIATION PNEUMONITIS [None]
  - DYSPNOEA [None]
  - NEOPLASM MALIGNANT [None]
  - HYPOXIA [None]
  - LUNG INFILTRATION [None]
  - CARDIAC FAILURE CONGESTIVE [None]
  - NEOPLASM PROGRESSION [None]
